FAERS Safety Report 18915361 (Version 2)
Quarter: 2022Q2

REPORT INFORMATION
  Report Type: Spontaneous
  Country: PT (occurrence: PT)
  Receive Date: 20210219
  Receipt Date: 20220609
  Transmission Date: 20220721
  Serious: Yes (Death, Other)
  Sender: FDA-Public Use
  Company Number: PT-SUN PHARMACEUTICAL INDUSTRIES LTD-2021R1-281875

PATIENT
  Age: 40 Year
  Sex: Female

DRUGS (2)
  1. GEMCITABINE [Suspect]
     Active Substance: GEMCITABINE
     Indication: Chemotherapy
     Dosage: 1000 MILLIGRAM/SQ. METER, DAYS 1 AND 8, EVERY 3 WEEKS
     Route: 065
     Dates: start: 201903, end: 201906
  2. PACLITAXEL [Suspect]
     Active Substance: PACLITAXEL
     Indication: Chemotherapy
     Dosage: 200 MILLIGRAM/SQ. METER, DAY 1 EVERY , 3 WEEKS
     Route: 065
     Dates: start: 201903, end: 201906

REACTIONS (2)
  - Condition aggravated [Fatal]
  - Acute kidney injury [Recovered/Resolved]
